FAERS Safety Report 7945078-3 (Version None)
Quarter: 2011Q4

REPORT INFORMATION
  Report Type: 
  Country: None (occurrence: None)
  Receive Date: 20111129
  Receipt Date: 20111121
  Transmission Date: 20120403
  Serious: Yes (Other)
  Sender: FDA-Public Use
  Company Number: US-UCBSA-8046218

PATIENT
  Sex: Female
  Weight: 2.24 kg

DRUGS (3)
  1. KEPPRA [Suspect]
     Indication: EPILEPSY
     Dosage: DOSE FREQ.: DAILY
     Route: 064
     Dates: end: 20081013
  2. MULTI-VITAMINS [Concomitant]
     Indication: SUPPLEMENTATION THERAPY
     Dosage: DOSE FREQ.: DAILY
     Route: 064
     Dates: end: 20081013
  3. FOLIC ACID [Concomitant]
     Indication: SUPPLEMENTATION THERAPY
     Dosage: DOSE FREQ.: DAILY TOTAL DAILY DOSE: 800MG
     Route: 064
     Dates: start: 20081013, end: 20081013

REACTIONS (2)
  - FOETAL EXPOSURE DURING PREGNANCY [None]
  - FOETAL GROWTH RESTRICTION [None]
